FAERS Safety Report 13170367 (Version 6)
Quarter: 2017Q3

REPORT INFORMATION
  Report Type: Report from Study
  Country: IT (occurrence: IT)
  Receive Date: 20170131
  Receipt Date: 20170911
  Transmission Date: 20171127
  Serious: Yes (Other)
  Sender: FDA-Public Use
  Company Number: IT-MYLANLABS-2017M1005610

PATIENT
  Age: 78 Year
  Sex: Female

DRUGS (5)
  1. FENTANIL [Concomitant]
     Active Substance: FENTANYL
     Indication: LIP AND/OR ORAL CAVITY CANCER
     Dosage: UNK
     Route: 062
  2. AULIN [Concomitant]
     Active Substance: NIMESULIDE
     Indication: LIP AND/OR ORAL CAVITY CANCER
     Dosage: UNK, PRN
     Route: 048
  3. LANSOPRAZOLE. [Suspect]
     Active Substance: LANSOPRAZOLE
     Indication: HEAD AND NECK CANCER METASTATIC
     Dosage: UNK
     Route: 042
     Dates: start: 20160317
  4. CETUXIMAB. [Suspect]
     Active Substance: CETUXIMAB
     Indication: HEAD AND NECK CANCER METASTATIC
     Dosage: UNK
     Route: 042
     Dates: start: 20160317
  5. BRUFEN [Concomitant]
     Active Substance: IBUPROFEN
     Indication: LIP AND/OR ORAL CAVITY CANCER
     Dosage: UNK, PRN
     Route: 048

REACTIONS (6)
  - Off label use [Unknown]
  - Pain in jaw [Unknown]
  - Loss of consciousness [Recovered/Resolved]
  - Oxygen saturation decreased [Unknown]
  - Urticaria [Recovered/Resolved]
  - Hypotension [Unknown]

NARRATIVE: CASE EVENT DATE: 20160317
